FAERS Safety Report 8507775-0 (Version None)
Quarter: 2012Q3

REPORT INFORMATION
  Report Type: 
  Country: None (occurrence: None)
  Receive Date: 20120709
  Receipt Date: 20120709
  Transmission Date: 20120928
  Serious: Yes (Other)
  Sender: FDA-Public Use
  Company Number: None

PATIENT
  Sex: Male
  Weight: 45.3597 kg

DRUGS (2)
  1. LOPERAMIDE HYDROCHLORIDE [Suspect]
     Indication: DIARRHOEA
     Dosage: 4 MG -2 X 2 MG TABLETS ONCE PO
     Route: 048
     Dates: start: 20120708, end: 20120708
  2. LOPERAMIDE HYDROCHLORIDE [Suspect]
     Indication: VOMITING
     Dosage: 4 MG -2 X 2 MG TABLETS ONCE PO
     Route: 048
     Dates: start: 20120708, end: 20120708

REACTIONS (3)
  - ERYTHEMA [None]
  - PRURITUS [None]
  - URTICARIA [None]
